FAERS Safety Report 12434891 (Version 1)
Quarter: 2016Q2

REPORT INFORMATION
  Report Type: Spontaneous
  Country: US (occurrence: US)
  Receive Date: 20160603
  Receipt Date: 20160603
  Transmission Date: 20160815
  Serious: No
  Sender: FDA-Public Use
  Company Number: US-ROCHE-1646385

PATIENT
  Sex: Female

DRUGS (1)
  1. ACTEMRA [Suspect]
     Active Substance: TOCILIZUMAB
     Indication: RHEUMATOID ARTHRITIS
     Dosage: LAST DOSE WAS 14 OCT 2015
     Route: 058

REACTIONS (4)
  - Device failure [Unknown]
  - Medication error [Unknown]
  - No adverse event [Unknown]
  - Inappropriate schedule of drug administration [Unknown]
